FAERS Safety Report 7833863-8 (Version None)
Quarter: 2011Q4

REPORT INFORMATION
  Report Type: 
  Country: None (occurrence: None)
  Receive Date: 20111024
  Receipt Date: 20111009
  Transmission Date: 20120403
  Serious: Yes (Death, Other)
  Sender: FDA-Public Use
  Company Number: DE-AMGEN-DEUSP2011045324

PATIENT
  Age: 62 Year
  Sex: Male
  Weight: 85 kg

DRUGS (2)
  1. ARANESP [Suspect]
     Indication: PRODUCT USED FOR UNKNOWN INDICATION
     Dosage: 30 MG, UNK
     Route: 058
     Dates: start: 20110701
  2. ARANESP [Suspect]
     Dosage: 80 MG, QWK
     Route: 058
     Dates: start: 20110829, end: 20110929

REACTIONS (5)
  - SEPSIS [None]
  - ARTHRALGIA [None]
  - THROMBOCYTOPENIA [None]
  - INJECTION SITE PAIN [None]
  - DEATH [None]
